FAERS Safety Report 5637268-X (Version None)
Quarter: 2008Q1

REPORT INFORMATION
  Report Type: 
  Country: None (occurrence: None)
  Receive Date: 20080225
  Receipt Date: 20071229
  Transmission Date: 20080703
  Serious: No
  Sender: FDA-Public Use
  Company Number: US-BRISTOL-MYERS SQUIBB COMPANY-14027817

PATIENT

DRUGS (1)
  1. KENALOG [Suspect]
     Indication: DRUG HYPERSENSITIVITY

REACTIONS (3)
  - INJECTION SITE ATROPHY [None]
  - INJECTION SITE DISCOLOURATION [None]
  - INJECTION SITE PAIN [None]
